FAERS Safety Report 10093424 (Version 1)
Quarter: 2014Q2

REPORT INFORMATION
  Report Type: Spontaneous
  Country: US (occurrence: US)
  Receive Date: 20140421
  Receipt Date: 20140421
  Transmission Date: 20141212
  Serious: No
  Sender: FDA-Public Use
  Company Number: US-SANOFI-AVENTIS-2013SA057604

PATIENT
  Sex: Male

DRUGS (2)
  1. FEXOFENADINE HYDROCHLORIDE [Suspect]
     Indication: PRURITUS
     Dates: start: 2013
  2. FEXOFENADINE HYDROCHLORIDE [Suspect]
     Indication: URTICARIA
     Dates: start: 2013

REACTIONS (3)
  - Drug ineffective [Unknown]
  - Drug prescribing error [Unknown]
  - Extra dose administered [Unknown]
